FAERS Safety Report 11939794 (Version 1)
Quarter: 2016Q1

REPORT INFORMATION
  Report Type: Spontaneous
  Country: BR (occurrence: BR)
  Receive Date: 20160122
  Receipt Date: 20160122
  Transmission Date: 20160526
  Serious: Yes (Hospitalization, Other)
  Sender: FDA-Public Use
  Company Number: BR-ASTRAZENECA-2016SE05455

PATIENT
  Age: 81 Year
  Sex: Male
  Weight: 50 kg

DRUGS (9)
  1. NEXIUM [Suspect]
     Active Substance: ESOMEPRAZOLE MAGNESIUM
     Indication: GASTRIC DISORDER
     Dosage: 40 MG, EVERY MORNING IN FASTING STATE
     Route: 048
     Dates: start: 201601
  2. PREDNISONE. [Concomitant]
     Active Substance: PREDNISONE
     Indication: LUNG DISORDER
     Route: 048
     Dates: start: 2010, end: 201601
  3. PREDNISONE. [Concomitant]
     Active Substance: PREDNISONE
     Indication: LUNG DISORDER
     Route: 048
     Dates: start: 201601
  4. AVODART [Concomitant]
     Active Substance: DUTASTERIDE
     Indication: PROSTATOMEGALY
     Dosage: EVERY DAY
     Route: 048
     Dates: end: 201601
  5. UNOPROST [Concomitant]
     Indication: PROSTATOMEGALY
     Route: 048
     Dates: end: 201601
  6. XARELTO [Concomitant]
     Active Substance: RIVAROXABAN
     Indication: PROPHYLAXIS
     Route: 048
     Dates: start: 201601
  7. NEXIUM [Suspect]
     Active Substance: ESOMEPRAZOLE MAGNESIUM
     Indication: GASTRIC DISORDER
     Dosage: 40 MG, EVERY MORNING IN FASTING STATE
     Route: 048
     Dates: start: 201507, end: 201601
  8. UNOPROST [Concomitant]
     Indication: PROSTATOMEGALY
     Route: 048
     Dates: start: 201601
  9. AVODART [Concomitant]
     Active Substance: DUTASTERIDE
     Indication: PROSTATOMEGALY
     Dosage: EVERY DAY
     Route: 048
     Dates: start: 201601

REACTIONS (5)
  - Cerebrovascular accident [Recovered/Resolved]
  - Asthenia [Recovered/Resolved]
  - Weight decreased [Not Recovered/Not Resolved]
  - Abdominal pain [Recovered/Resolved]
  - Hiccups [Not Recovered/Not Resolved]

NARRATIVE: CASE EVENT DATE: 2015
